FAERS Safety Report 8773301 (Version 3)
Quarter: 2014Q2

REPORT INFORMATION
  Report Type: Spontaneous
  Country: US (occurrence: US)
  Receive Date: 20120907
  Receipt Date: 20140602
  Transmission Date: 20141212
  Serious: Yes (Death, Hospitalization, Other)
  Sender: FDA-Public Use
  Company Number: US-BAYER-2012-092146

PATIENT
  Age: 25 Year
  Sex: Female
  Weight: 58.96 kg

DRUGS (6)
  1. YAZ [Suspect]
     Dosage: UNK
     Dates: end: 20091231
  2. YASMIN [Suspect]
     Dosage: UNK
  3. TRAZODONE [Concomitant]
     Dosage: UNK
     Dates: start: 20090930
  4. RELAFEN [Concomitant]
     Dosage: 500 MG, 2 TABS TWICE A DAY
     Dates: start: 20090930
  5. ULTRAM [Concomitant]
     Dosage: 50 MG, ONE TO TWO TABLETS EVERY 4 TO 6
     Route: 048
     Dates: start: 20090930, end: 20091001
  6. FLEXERIL [Concomitant]
     Dosage: 5 MG, TAKE 2 EVERY 8 HOURS AS NEEDED
     Route: 048
     Dates: start: 20090930, end: 20091001

REACTIONS (14)
  - Thrombophlebitis superficial [None]
  - Mitral valve disease [Fatal]
  - Thrombosis [Fatal]
  - Pulmonary artery thrombosis [Fatal]
  - Intracardiac thrombus [Fatal]
  - Embolism [Fatal]
  - Emotional distress [None]
  - Back pain [None]
  - Muscle strain [None]
  - Injury [None]
  - Back pain [None]
  - Anxiety [None]
  - Psychological trauma [None]
  - Pain [None]
